FAERS Safety Report 8821531 (Version 1)
Quarter: 2012Q4

REPORT INFORMATION
  Report Type: 
  Country: US (occurrence: US)
  Receive Date: 20121002
  Receipt Date: 20121002
  Transmission Date: 20130627
  Serious: Yes (Hospitalization)
  Sender: FDA-Public Use
  Company Number: US-009507513-1102USA00773

PATIENT
  Age: 56 Year
  Sex: Male

DRUGS (8)
  1. JANUVIA [Suspect]
     Indication: TYPE 2 DIABETES MELLITUS
     Route: 048
  2. GLYBURIDE [Suspect]
  3. ACTOS [Suspect]
  4. NOVOLOG [Suspect]
     Dosage: Sliding scale
  5. LANTUS [Suspect]
     Indication: TYPE 2 DIABETES MELLITUS
     Dosage: 25 IU, qd (18 to 20 units)
     Route: 058
  6. ASPIRIN [Concomitant]
  7. LASIX (FUROSEMIDE) [Concomitant]
  8. PLAVIX [Concomitant]

REACTIONS (7)
  - Infected skin ulcer [Unknown]
  - Blood glucose decreased [Unknown]
  - Balance disorder [Unknown]
  - Heart rate increased [Unknown]
  - Hyperhidrosis [Unknown]
  - Headache [Unknown]
  - Tremor [Unknown]
